FAERS Safety Report 9952174 (Version 3)
Quarter: 2014Q3

REPORT INFORMATION
  Report Type: Spontaneous
  Country: IT (occurrence: IT)
  Receive Date: 20140304
  Receipt Date: 20140713
  Transmission Date: 20150326
  Serious: Yes (Hospitalization)
  Sender: FDA-Public Use
  Company Number: IT-SA-2014SA023392

PATIENT
  Age: 86 Year
  Sex: Female

DRUGS (9)
  1. XERISTAR [Concomitant]
     Active Substance: DULOXETINE HYDROCHLORIDE
     Dosage: STRENGTH: 60 MG
  2. NORMIX [Concomitant]
     Active Substance: RIFAXIMIN
     Dosage: STRENGTH: 200 MG FIL COATED TABLETS
  3. TAVOR [Concomitant]
     Active Substance: LORAZEPAM
  4. COUMADIN [Suspect]
     Active Substance: WARFARIN SODIUM
     Indication: ATRIAL FIBRILLATION
     Route: 048
     Dates: start: 20130101, end: 20130814
  5. KANRENOL [Concomitant]
     Active Substance: CANRENOATE POTASSIUM
     Dosage: STRENGTH: 100 MG
     Route: 048
  6. REPAGLINIDE. [Concomitant]
     Active Substance: REPAGLINIDE
     Route: 048
  7. CLASTEON [Concomitant]
     Dosage: STRENTGH: 100 MG/3.3 ML INJECTION SOLUTION
  8. OLMETEC [Concomitant]
     Active Substance: OLMESARTAN MEDOXOMIL
     Dosage: STRENGTH: 20 MG FILM COATED TABLETS
  9. LASIX [Suspect]
     Active Substance: FUROSEMIDE
     Indication: HYPERTENSION
     Route: 048
     Dates: start: 20130101, end: 20130814

REACTIONS (5)
  - International normalised ratio increased [Recovering/Resolving]
  - Sopor [Recovering/Resolving]
  - Hyponatraemia [Recovering/Resolving]
  - Confusional state [Recovering/Resolving]
  - Lethargy [Recovering/Resolving]

NARRATIVE: CASE EVENT DATE: 20130809
